FAERS Safety Report 6783626-X (Version None)
Quarter: 2010Q2

REPORT INFORMATION
  Report Type: 
  Country: None (occurrence: None)
  Receive Date: 20100622
  Receipt Date: 20100609
  Transmission Date: 20101027
  Serious: Yes (Hospitalization, Disabling)
  Sender: FDA-Public Use
  Company Number: PHBS2007JP06716

PATIENT
  Sex: Female
  Weight: 31 kg

DRUGS (7)
  1. AREDIA [Suspect]
     Indication: METASTASES TO BONE
     Dosage: 45 MG, UNK
     Route: 042
     Dates: start: 20041202, end: 20060316
  2. TAXOTERE [Concomitant]
     Indication: BREAST CANCER
     Dosage: 90 MG, UNK
     Route: 042
     Dates: start: 20041126, end: 20041201
  3. TAXOTERE [Concomitant]
     Route: 042
     Dates: start: 20041217, end: 20041222
  4. TAXOTERE [Concomitant]
     Route: 042
     Dates: start: 20050107, end: 20050112
  5. FARMORUBICIN [Concomitant]
     Indication: BREAST CANCER
     Dosage: 90 MG, UNK
     Route: 042
     Dates: start: 20041125, end: 20050127
  6. UFT [Concomitant]
     Indication: BREAST CANCER
     Dosage: 100 MG, TID
     Route: 048
     Dates: start: 20050423, end: 20060114
  7. ANTINEOPLASTIC AGENTS [Concomitant]

REACTIONS (16)
  - ABSCESS ORAL [None]
  - BONE DISORDER [None]
  - DISCOMFORT [None]
  - INCISIONAL DRAINAGE [None]
  - INFLAMMATION [None]
  - LOOSE TOOTH [None]
  - LYMPHADENECTOMY [None]
  - MASTECTOMY [None]
  - OSTEOMYELITIS [None]
  - OSTEONECROSIS OF JAW [None]
  - PERIODONTITIS [None]
  - SEQUESTRECTOMY [None]
  - SINUSITIS [None]
  - STOMATITIS [None]
  - SWELLING [None]
  - TOOTH EXTRACTION [None]
